FAERS Safety Report 23878440 (Version 1)
Quarter: 2024Q2

REPORT INFORMATION
  Report Type: Spontaneous
  Country: AU (occurrence: None)
  Receive Date: 20240520
  Receipt Date: 20240520
  Transmission Date: 20240716
  Serious: Yes (Other)
  Sender: FDA-Public Use
  Company Number: None

PATIENT
  Age: 42 Year
  Sex: Female

DRUGS (1)
  1. OZEMPIC [Suspect]
     Active Substance: SEMAGLUTIDE
     Indication: Binge eating
     Dosage: OTHER QUANTITY : 1 INJECTION(S);?OTHER FREQUENCY : ONCE A WEEK;?
     Dates: start: 20240507, end: 20240514

REACTIONS (4)
  - Emotional disorder [None]
  - Hypoaesthesia [None]
  - Depression [None]
  - Depressed mood [None]

NARRATIVE: CASE EVENT DATE: 20240519
